FAERS Safety Report 5129820-5 (Version None)
Quarter: 2006Q4

REPORT INFORMATION
  Report Type: 
  Country: None (occurrence: None)
  Receive Date: 20061018
  Receipt Date: 20060606
  Transmission Date: 20070319
  Serious: Yes (Disabling)
  Sender: FDA-Public Use
  Company Number: US-BRISTOL-MYERS SQUIBB COMPANY-13403100

PATIENT
  Age: 35 Year
  Sex: Male
  Weight: 78 kg

DRUGS (1)
  1. COUMADIN [Suspect]
     Indication: COAGULATION FACTOR V LEVEL ABNORMAL
     Dosage: THERAPY START DATE 2-27-06 - 3-27-2006 (EST)
     Route: 048
     Dates: start: 20060227, end: 20060327

REACTIONS (3)
  - FATIGUE [None]
  - MENTAL STATUS CHANGES [None]
  - VISUAL DISTURBANCE [None]
